FAERS Safety Report 23884995 (Version 2)
Quarter: 2024Q3

REPORT INFORMATION
  Report Type: Report from Study
  Country: MX (occurrence: MX)
  Receive Date: 20240522
  Receipt Date: 20240703
  Transmission Date: 20241016
  Serious: Yes (Other)
  Sender: NOVARTIS
  Company Number: MX-002147023-NVSC2024MX106616

PATIENT
  Sex: Female
  Weight: 69 kg

DRUGS (1)
  1. GILENYA [Suspect]
     Active Substance: FINGOLIMOD HYDROCHLORIDE
     Indication: Multiple sclerosis
     Dosage: 0.5 MG, QD
     Route: 048
     Dates: start: 20210406, end: 202404

REACTIONS (4)
  - Arrhythmia [Unknown]
  - Bradycardia [Unknown]
  - Cardiac disorder [Not Recovered/Not Resolved]
  - Laboratory test abnormal [Unknown]
